FAERS Safety Report 7834661-1 (Version None)
Quarter: 2011Q4

REPORT INFORMATION
  Report Type: 
  Country: None (occurrence: None)
  Receive Date: 20111020
  Receipt Date: 20111004
  Transmission Date: 20120403
  Serious: Yes (Other)
  Sender: FDA-Public Use
  Company Number: 2011MA014912

PATIENT
  Age: 56 Year
  Sex: Female
  Weight: 60 kg

DRUGS (2)
  1. VERAPAMIL HCL [Suspect]
     Indication: INTENTIONAL OVERDOSE
     Dosage: 3360 MG;X1;PO
     Route: 048
  2. VERAPAMIL HCL [Suspect]
     Indication: ATRIAL FLUTTER
     Dosage: 3360 MG;X1;PO
     Route: 048

REACTIONS (9)
  - NODAL RHYTHM [None]
  - OVERDOSE [None]
  - DIZZINESS [None]
  - SINUS BRADYCARDIA [None]
  - GENERAL PHYSICAL HEALTH DETERIORATION [None]
  - ELECTROCARDIOGRAM PR PROLONGATION [None]
  - CONFUSIONAL STATE [None]
  - BLOOD PRESSURE DECREASED [None]
  - SOMNOLENCE [None]
